FAERS Safety Report 8582424-4 (Version None)
Quarter: 2012Q3

REPORT INFORMATION
  Report Type: 
  Country: None (occurrence: None)
  Receive Date: 20120809
  Receipt Date: 20120731
  Transmission Date: 20120928
  Serious: Yes (Life-Threatening, Hospitalization)
  Sender: FDA-Public Use
  Company Number: FR-GLAXOSMITHKLINE-B0819384A

PATIENT
  Sex: Female
  Weight: 60 kg

DRUGS (1)
  1. ARIXTRA [Suspect]
     Indication: DEEP VEIN THROMBOSIS
     Dosage: 7.5MG PER DAY
     Route: 058
     Dates: start: 20120201, end: 20120601

REACTIONS (4)
  - INCORRECT DRUG ADMINISTRATION DURATION [None]
  - COMA [None]
  - BRAIN HERNIATION [None]
  - CEREBRAL HAEMATOMA [None]
